FAERS Safety Report 4335506-7 (Version None)
Quarter: 2004Q2

REPORT INFORMATION
  Report Type: 
  Country: None (occurrence: None)
  Receive Date: 20040406
  Receipt Date: 20040326
  Transmission Date: 20050107
  Serious: No
  Sender: FDA-Public Use
  Company Number: US-SHR-04-023263

PATIENT

DRUGS (1)
  1. BETASERON [Suspect]
     Dosage: SUBCUTANEOUS
     Route: 058
     Dates: start: 20030301

REACTIONS (2)
  - PAIN [None]
  - ULCER [None]
